FAERS Safety Report 4498334-8 (Version None)
Quarter: 2004Q4

REPORT INFORMATION
  Report Type: 
  Country: None (occurrence: None)
  Receive Date: 20041104
  Receipt Date: 20041022
  Transmission Date: 20050328
  Serious: Yes (Hospitalization, Other)
  Sender: FDA-Public Use
  Company Number: 2004068910

PATIENT
  Age: 50 Year
  Sex: Male

DRUGS (3)
  1. ZOLOFT [Suspect]
     Indication: OBSESSIVE-COMPULSIVE DISORDER
     Dosage: 250 MG (50 MG, 1 D), ORAL
     Route: 048
     Dates: start: 20040701
  2. LORAZEPAM [Suspect]
     Indication: OBSESSIVE-COMPULSIVE DISORDER
     Dosage: 5 MG, ORAL
     Route: 048
     Dates: start: 20040201
  3. QUETIAPINE (QUETIAPINE) [Suspect]
     Indication: OBSESSIVE-COMPULSIVE DISORDER
     Dosage: 50 MG, ORAL
     Route: 048

REACTIONS (2)
  - GRAND MAL CONVULSION [None]
  - MULTIPLE SCLEROSIS [None]
